FAERS Safety Report 14559895 (Version 3)
Quarter: 2018Q2

REPORT INFORMATION
  Report Type: Spontaneous
  Country: US (occurrence: US)
  Receive Date: 20180221
  Receipt Date: 20180417
  Transmission Date: 20180711
  Serious: Yes (Hospitalization, Other)
  Sender: FDA-Public Use
  Company Number: US-AMGEN-USASP2018022941

PATIENT
  Age: 69 Year
  Sex: Female

DRUGS (3)
  1. ENBREL [Suspect]
     Active Substance: ETANERCEPT
     Dosage: 50 MG, QWK
     Route: 065
     Dates: start: 20180207, end: 20180209
  2. ENBREL [Suspect]
     Active Substance: ETANERCEPT
     Dosage: 50 MG, QWK
     Route: 065
     Dates: start: 20180216
  3. ENBREL [Suspect]
     Active Substance: ETANERCEPT
     Indication: RHEUMATOID ARTHRITIS
     Dosage: 50 MG, QWK
     Route: 065
     Dates: start: 201709, end: 201710

REACTIONS (16)
  - Accidental exposure to product [Unknown]
  - Pruritus [Unknown]
  - Cerebellar haemorrhage [Unknown]
  - Postoperative wound infection [Unknown]
  - Erythema [Unknown]
  - Drug dose omission [Unknown]
  - Cardiac disorder [Unknown]
  - Injection site reaction [Unknown]
  - Loss of consciousness [Recovered/Resolved]
  - Post procedural complication [Unknown]
  - Back disorder [Unknown]
  - Underdose [Unknown]
  - Injection site pain [Unknown]
  - Anaemia [Unknown]
  - Device leakage [Unknown]
  - Wrong technique in product usage process [Unknown]

NARRATIVE: CASE EVENT DATE: 2017
